FAERS Safety Report 7159529-8 (Version None)
Quarter: 2010Q4

REPORT INFORMATION
  Report Type: 
  Country: None (occurrence: None)
  Receive Date: 20101214
  Receipt Date: 20100916
  Transmission Date: 20110411
  Serious: No
  Sender: FDA-Public Use
  Company Number: US-ASTRAZENECA-2010SE43719

PATIENT
  Age: 66 Year
  Sex: Female
  Weight: 88.5 kg

DRUGS (8)
  1. CRESTOR [Suspect]
     Route: 048
  2. CRESTOR [Suspect]
     Route: 048
  3. METFORMIN [Concomitant]
     Indication: DIABETES MELLITUS
  4. TRILIPIX [Concomitant]
     Indication: BLOOD CHOLESTEROL
  5. SPIRONOLACTONE [Concomitant]
     Indication: HYPERTENSION
  6. BISOPROLOL HCT [Concomitant]
     Indication: HYPERTENSION
  7. AMLODIPINE [Concomitant]
     Indication: HYPERTENSION
  8. LORATADINE [Concomitant]
     Indication: HYPERSENSITIVITY

REACTIONS (3)
  - FATIGUE [None]
  - INFLUENZA LIKE ILLNESS [None]
  - MYALGIA [None]
